FAERS Safety Report 7483938-0 (Version None)
Quarter: 2011Q2

REPORT INFORMATION
  Report Type: 
  Country: None (occurrence: None)
  Receive Date: 20110509
  Receipt Date: 20110426
  Transmission Date: 20111010
  Serious: Yes (Hospitalization)
  Sender: FDA-Public Use
  Company Number: 116326

PATIENT
  Age: 46 Year
  Sex: Female

DRUGS (4)
  1. LEUCOVIRIN CALCIUM FOR INJEC. 50MG-BEDFORD LABS, INC. [Suspect]
     Indication: COLON CANCER
     Dosage: 347MG, 352NGM 359MG IV INFUSION
     Route: 042
     Dates: start: 20100728
  2. LEUCOVIRIN CALCIUM FOR INJEC. 50MG-BEDFORD LABS, INC. [Suspect]
     Indication: COLON CANCER
     Dosage: 347MG, 352NGM 359MG IV INFUSION
     Route: 042
     Dates: start: 20100824
  3. LEUCOVIRIN CALCIUM FOR INJEC. 50MG-BEDFORD LABS, INC. [Suspect]
     Indication: COLON CANCER
     Dosage: 347MG, 352NGM 359MG IV INFUSION
     Route: 042
     Dates: start: 20100809
  4. LEUCOVIRIN CALCIUM FOR INJEC. 50MG-BEDFORD LABS, INC. [Suspect]
     Indication: COLON CANCER
     Dosage: 347MG, 352NGM 359MG IV INFUSION
     Route: 042
     Dates: start: 20100712

REACTIONS (10)
  - TRICUSPID VALVE INCOMPETENCE [None]
  - MITRAL VALVE INCOMPETENCE [None]
  - VOMITING [None]
  - MYOCARDIAL ISCHAEMIA [None]
  - HYPOKALAEMIA [None]
  - ELECTROCARDIOGRAM QT PROLONGED [None]
  - SINUS TACHYCARDIA [None]
  - LEFT VENTRICULAR DYSFUNCTION [None]
  - DIARRHOEA [None]
  - VENTRICULAR HYPOKINESIA [None]
